FAERS Safety Report 9751549 (Version 1)
Quarter: 2013Q4

REPORT INFORMATION
  Report Type: Spontaneous
  Country: US (occurrence: US)
  Receive Date: 20131212
  Receipt Date: 20131212
  Transmission Date: 20140711
  Serious: No
  Sender: FDA-Public Use
  Company Number: US-PURDUE-USA-2013-0103584

PATIENT
  Age: 52 Year
  Sex: Male

DRUGS (2)
  1. DILAUDID TABLET [Suspect]
     Indication: BACK PAIN
     Dosage: 8 MG 2 TABLETS), QID
     Route: 060
  2. HYDROMORPHONE HCL (SIMILAR TO 19-892) [Suspect]
     Indication: BACK PAIN
     Dosage: 8 MG (ONE TO TWO TABLETS), QID
     Route: 048

REACTIONS (3)
  - Incorrect route of drug administration [Unknown]
  - Oral mucosal blistering [Not Recovered/Not Resolved]
  - Drug ineffective [Unknown]
